FAERS Safety Report 19785282 (Version 1)
Quarter: 2021Q3

REPORT INFORMATION
  Report Type: Other
  Country: CA (occurrence: CA)
  Receive Date: 20210903
  Receipt Date: 20210903
  Transmission Date: 20211014
  Serious: Yes (Life-Threatening)
  Sender: FDA-Public Use
  Company Number: CA-PFIZER INC-202101109654

PATIENT
  Age: 36 Year
  Sex: Female

DRUGS (11)
  1. TRIAZOLAM. [Suspect]
     Active Substance: TRIAZOLAM
     Indication: BACK PAIN
     Dosage: 0.25 MG
     Route: 048
  2. PREGABALIN. [Suspect]
     Active Substance: PREGABALIN
     Indication: MUSCULOSKELETAL PAIN
     Dosage: 150 MG
     Route: 048
  3. AMITRIPTYLINE HYDROCHLORIDE/PERPHENAZINE [Suspect]
     Active Substance: AMITRIPTYLINE HYDROCHLORIDE\PERPHENAZINE
     Indication: MUSCULOSKELETAL PAIN
     Dosage: 10 MG
     Route: 065
  4. ACETAMINOPHEN. [Suspect]
     Active Substance: ACETAMINOPHEN
     Indication: MUSCULOSKELETAL PAIN
     Dosage: 325 MG
     Route: 048
  5. DULOXETINE SANDOZ [Suspect]
     Active Substance: DULOXETINE
     Indication: BACK PAIN
     Dosage: 60 MG
     Route: 048
  6. TRAMADOL HYDROCHLORIDE. [Suspect]
     Active Substance: TRAMADOL HYDROCHLORIDE
     Indication: MUSCULOSKELETAL PAIN
     Dosage: 187.5 MG
     Route: 048
  7. AMITRIPTYLINE HYDROCHLORIDE/PERPHENAZINE [Suspect]
     Active Substance: AMITRIPTYLINE HYDROCHLORIDE\PERPHENAZINE
     Indication: BACK PAIN
     Dosage: 10 MG
     Route: 065
  8. TRIAZOLAM. [Suspect]
     Active Substance: TRIAZOLAM
     Indication: MUSCULOSKELETAL PAIN
     Dosage: 0.25 MG
     Route: 048
  9. ACETAMINOPHEN. [Suspect]
     Active Substance: ACETAMINOPHEN
     Indication: BACK PAIN
     Dosage: 325 MG
     Route: 048
  10. DULOXETINE SANDOZ [Suspect]
     Active Substance: DULOXETINE
     Indication: MUSCULOSKELETAL PAIN
     Dosage: 60 MG
     Route: 048
  11. TRAMADOL HYDROCHLORIDE. [Suspect]
     Active Substance: TRAMADOL HYDROCHLORIDE
     Indication: BACK PAIN
     Dosage: 187.5 MG
     Route: 048

REACTIONS (1)
  - Serotonin syndrome [Recovered/Resolved]
